FAERS Safety Report 12808978 (Version 1)
Quarter: 2016Q4

REPORT INFORMATION
  Report Type: Spontaneous
  Country: FR (occurrence: FR)
  Receive Date: 20161004
  Receipt Date: 20161004
  Transmission Date: 20170207
  Serious: Yes (Hospitalization)
  Sender: FDA-Public Use
  Company Number: FR-SA-2016SA178881

PATIENT
  Age: 9 Year
  Sex: Female
  Weight: 35 kg

DRUGS (5)
  1. BACTRIM [Suspect]
     Active Substance: SULFAMETHOXAZOLE\TRIMETHOPRIM
     Indication: OSTEOARTHROPATHY
     Route: 048
     Dates: start: 20160812, end: 20160906
  2. SPECIAFOLDINE [Concomitant]
     Active Substance: FOLIC ACID
     Dates: start: 20160812
  3. RIFADINE [Suspect]
     Active Substance: RIFAMPIN
     Indication: OSTEOARTHROPATHY
     Route: 042
     Dates: start: 20160711, end: 20160811
  4. RIFADINE [Suspect]
     Active Substance: RIFAMPIN
     Indication: OSTEOARTHROPATHY
     Route: 048
     Dates: start: 20160812, end: 20160907
  5. BACTRIM [Suspect]
     Active Substance: SULFAMETHOXAZOLE\TRIMETHOPRIM
     Indication: OSTEOARTHROPATHY
     Route: 042
     Dates: start: 20160728, end: 20160811

REACTIONS (2)
  - Agranulocytosis [Recovered/Resolved]
  - Anaemia [Recovering/Resolving]

NARRATIVE: CASE EVENT DATE: 20160902
